FAERS Safety Report 5177570-1 (Version None)
Quarter: 2006Q4

REPORT INFORMATION
  Report Type: 
  Country: None (occurrence: None)
  Receive Date: 20061207
  Receipt Date: 20061129
  Transmission Date: 20070319
  Serious: Yes (Other)
  Sender: FDA-Public Use
  Company Number: 2006147478

PATIENT
  Sex: Male

DRUGS (1)
  1. VIAGRA [Suspect]
     Dates: start: 20040601

REACTIONS (2)
  - BLINDNESS UNILATERAL [None]
  - INJURY [None]
